FAERS Safety Report 9605704 (Version 2)
Quarter: 2013Q4

REPORT INFORMATION
  Report Type: Spontaneous
  Country: BR (occurrence: BR)
  Receive Date: 20131008
  Receipt Date: 20131016
  Transmission Date: 20140711
  Serious: Yes (Other)
  Sender: FDA-Public Use
  Company Number: PHHY2013BR110881

PATIENT
  Age: 39 Year
  Sex: Female
  Weight: 80 kg

DRUGS (2)
  1. CIPROFLOXACIN HYDROCHLORIDE [Suspect]
     Indication: URINARY TRACT INFECTION
     Dosage: 500 MG, Q12H
     Route: 048
     Dates: start: 20130929, end: 20130929
  2. PURAN T4 [Concomitant]
     Indication: HYPOTHYROIDISM
     Dosage: 100 UG, QD

REACTIONS (10)
  - Tracheal obstruction [Recovered/Resolved]
  - Constipation [Not Recovered/Not Resolved]
  - Throat irritation [Recovered/Resolved]
  - Eye pruritus [Recovered/Resolved]
  - Eye swelling [Recovered/Resolved]
  - Pharyngeal oedema [Recovered/Resolved]
  - Dyspnoea [Recovered/Resolved]
  - Tongue disorder [Recovered/Resolved]
  - Pain [Unknown]
  - Drug ineffective [Unknown]
